FAERS Safety Report 5243779-1 (Version None)
Quarter: 2007Q1

REPORT INFORMATION
  Report Type: 
  Country: None (occurrence: None)
  Receive Date: 20070220
  Receipt Date: 20070220
  Transmission Date: 20070707
  Serious: Yes (Hospitalization)
  Sender: FDA-Public Use
  Company Number: None

PATIENT
  Age: 41 Year
  Sex: Female
  Weight: 72.5755 kg

DRUGS (1)
  1. DIHYDROERGOTAMINE INJECTION [Suspect]
     Indication: MIGRAINE
     Dosage: 1CC INJECTION  1 TIME AS NEEDED SQ
     Route: 058
     Dates: start: 20060801, end: 20070106

REACTIONS (9)
  - BLOOD PRESSURE INADEQUATELY CONTROLLED [None]
  - CARDIAC MURMUR [None]
  - CHEST PAIN [None]
  - DIZZINESS [None]
  - DYSPNOEA [None]
  - FATIGUE [None]
  - HEART VALVE INSUFFICIENCY [None]
  - PULMONARY HYPERTENSION [None]
  - TACHYCARDIA [None]
